FAERS Safety Report 12900089 (Version 2)
Quarter: 2016Q4

REPORT INFORMATION
  Report Type: Report from Study
  Country: NL (occurrence: NL)
  Receive Date: 20161101
  Receipt Date: 20161202
  Transmission Date: 20170207
  Serious: Yes (Hospitalization)
  Sender: FDA-Public Use
  Company Number: NL-IPSEN BIOPHARMACEUTICALS, INC.-2016-09231

PATIENT
  Age: 54 Year
  Sex: Female

DRUGS (19)
  1. SOMATULINE AUTOGEL [Suspect]
     Active Substance: LANREOTIDE ACETATE
     Indication: NEUROENDOCRINE TUMOUR
     Dosage: 90 MG
     Route: 058
     Dates: start: 20120613, end: 20161011
  2. EUTHYROX [Concomitant]
     Active Substance: LEVOTHYROXINE SODIUM
     Route: 048
  3. LEVOCETIRIZINE [Concomitant]
     Active Substance: LEVOCETIRIZINE
     Route: 048
  4. EUTHYROX [Concomitant]
     Active Substance: LEVOTHYROXINE SODIUM
     Route: 048
  5. NAPROXEN. [Concomitant]
     Active Substance: NAPROXEN
     Dosage: AS NEEDED
     Route: 048
  6. DEHYDROEPIANDROSTERON [Concomitant]
     Route: 048
  7. LEVOMENTHOL [Concomitant]
     Active Substance: LEVOMENTHOL
     Dosage: 20 MG/G
     Route: 061
  8. ROSUVASTATIN. [Concomitant]
     Active Substance: ROSUVASTATIN
     Route: 048
  9. FUSIDINEZUUR CREME [Concomitant]
     Dosage: 20 MG/G
     Route: 061
  10. ALFACALCIDOL [Concomitant]
     Active Substance: ALFACALCIDOL
     Route: 048
  11. FLUDROCORTISON [Concomitant]
     Active Substance: FLUDROCORTISONE
     Route: 048
  12. LIDOCAINE. [Concomitant]
     Active Substance: LIDOCAINE
     Dosage: 50 MG/G
     Route: 061
  13. OMEPRAZOLE. [Concomitant]
     Active Substance: OMEPRAZOLE
     Route: 048
  14. CALCIUMCARB/COLECALC [Concomitant]
     Dosage: 1.25 G/400 IE
     Route: 048
  15. HYDROCORTISON POWDER FOR SOLUTION FOR INJECTION [Concomitant]
     Dosage: IN CASE OF EMERGENCY
     Route: 058
  16. DOMPERIDONE [Concomitant]
     Active Substance: DOMPERIDONE
     Indication: NAUSEA
     Dosage: AS NEEDED
  17. DEXTRAN 70/HYPROMELLOSE [Concomitant]
     Dosage: 1/3 MG/ML
     Route: 048
  18. HYDROCORTISON TABLET [Concomitant]
     Route: 048
  19. HYDROCORTISON TABLET [Concomitant]
     Dosage: 5 MG EXTRA IN STRESS SITUATIONS
     Route: 048

REACTIONS (2)
  - Bradycardia [Recovered/Resolved]
  - Hypoglycaemia [Recovered/Resolved]

NARRATIVE: CASE EVENT DATE: 20161013
